FAERS Safety Report 6120228-2 (Version None)
Quarter: 2009Q1

REPORT INFORMATION
  Report Type: 
  Country: None (occurrence: None)
  Receive Date: 20090312
  Receipt Date: 20090303
  Transmission Date: 20090719
  Serious: Yes (Hospitalization)
  Sender: FDA-Public Use
  Company Number: CLOF-1000462

PATIENT
  Age: 42 Year
  Sex: Male

DRUGS (2)
  1. CLOLAR [Suspect]
     Indication: ACUTE MYELOID LEUKAEMIA
     Dosage: 85 MG, QDX5, INTRAVENOUS
     Route: 042
     Dates: start: 20081223, end: 20081227
  2. BUSULFAN (BUSULFAN) [Suspect]
     Indication: ACUTE MYELOID LEUKAEMIA
     Dosage: 300 MG, QDX4, INTRAVENOUS
     Route: 042
     Dates: start: 20081224, end: 20081227

REACTIONS (3)
  - BLOOD PRESSURE DECREASED [None]
  - BONE MARROW TRANSPLANT [None]
  - DIZZINESS POSTURAL [None]
